FAERS Safety Report 6940567-2 (Version None)
Quarter: 2010Q3

REPORT INFORMATION
  Report Type: 
  Country: None (occurrence: None)
  Receive Date: 20100825
  Receipt Date: 20100817
  Transmission Date: 20110219
  Serious: Yes (Hospitalization, Other)
  Sender: FDA-Public Use
  Company Number: US-BAYER-201031018NA

PATIENT
  Age: 81 Year
  Sex: Male

DRUGS (1)
  1. MAGNEVIST [Suspect]
     Indication: NEOPLASM
     Dates: start: 20100816, end: 20100816

REACTIONS (5)
  - EYE SWELLING [None]
  - NAUSEA [None]
  - PRURITUS [None]
  - SNEEZING [None]
  - SWELLING FACE [None]
